FAERS Safety Report 13052579 (Version 1)
Quarter: 2016Q4

REPORT INFORMATION
  Report Type: Spontaneous
  Country: US (occurrence: US)
  Receive Date: 20161221
  Receipt Date: 20161221
  Transmission Date: 20170207
  Serious: No
  Sender: FDA-Public Use
  Company Number: US-ALLERGAN-1000084101

PATIENT
  Age: 74 Year
  Sex: Male

DRUGS (2)
  1. ALTACE [Concomitant]
     Active Substance: RAMIPRIL
     Dosage: UNK
  2. BYSTOLIC [Suspect]
     Active Substance: NEBIVOLOL HYDROCHLORIDE
     Dosage: 5 MG, QD
     Route: 048
     Dates: start: 2011, end: 201603

REACTIONS (2)
  - Dizziness [Recovering/Resolving]
  - Blood pressure decreased [Recovering/Resolving]

NARRATIVE: CASE EVENT DATE: 201512
